FAERS Safety Report 23269263 (Version 1)
Quarter: 2023Q4

REPORT INFORMATION
  Report Type: Report from Study
  Country: RO (occurrence: RO)
  Receive Date: 20231207
  Receipt Date: 20231207
  Transmission Date: 20240110
  Serious: Yes (Other)
  Sender: FDA-Public Use
  Company Number: RO-CELLTRION INC.-2023RO023104

PATIENT

DRUGS (8)
  1. BEVACIZUMAB [Suspect]
     Active Substance: BEVACIZUMAB
     Indication: Hepatocellular carcinoma
     Dosage: 1300 MG
     Route: 065
     Dates: start: 20230509
  2. ATEZOLIZUMAB [Suspect]
     Active Substance: ATEZOLIZUMAB
     Indication: Hepatocellular carcinoma
     Dosage: ON 19/SEP/2023 RECEIVED THE MOST RECENT DOSE ATEZOLIZUMAB 1200 MG PRIOR TO AE; 1200 MG, EVERY 3 WEEK
     Route: 042
     Dates: start: 20230509
  3. ATACAND [Concomitant]
     Active Substance: CANDESARTAN CILEXETIL
     Dosage: 16 MG; 0.5 DAY
     Dates: start: 20230530
  4. ROSUVASTATIN [Concomitant]
     Active Substance: ROSUVASTATIN
     Dosage: 10 MG, QD
  5. RILMENIDINE [Concomitant]
     Active Substance: RILMENIDINE
     Dosage: 1 MG; 0.5 DAY
  6. CARVEDILOL [Concomitant]
     Active Substance: CARVEDILOL
     Dosage: 25 MG; 0.5 DAY
  7. CAPTOPRIL [Concomitant]
     Active Substance: CAPTOPRIL
     Dosage: 50 MG, QD
  8. LERIDIP [Concomitant]
     Dosage: 20 MG, QD

REACTIONS (3)
  - Hyperkalaemia [Recovered/Resolved]
  - Blood creatinine increased [Not Recovered/Not Resolved]
  - Intentional product use issue [Unknown]

NARRATIVE: CASE EVENT DATE: 20231010
